FAERS Safety Report 24312846 (Version 2)
Quarter: 2024Q3

REPORT INFORMATION
  Report Type: Spontaneous
  Country: US (occurrence: US)
  Receive Date: 20240912
  Receipt Date: 20240918
  Transmission Date: 20241017
  Serious: Yes (Other)
  Sender: NOVARTIS
  Company Number: US-PFIZER INC-202200611506

PATIENT
  Sex: Female

DRUGS (6)
  1. LETROZOLE [Suspect]
     Active Substance: LETROZOLE
     Indication: Invasive ductal breast carcinoma
     Dosage: UNK
     Route: 065
  2. LETROZOLE [Suspect]
     Active Substance: LETROZOLE
     Indication: Metastases to bone
  3. LETROZOLE [Suspect]
     Active Substance: LETROZOLE
     Indication: Lung carcinoma cell type unspecified stage 0
  4. IBRANCE [Suspect]
     Active Substance: PALBOCICLIB
     Indication: Breast cancer female
     Dosage: 100 MG, QD (DAY 1-21, AND OFF  IBRANCE FOR TWO WEEKS)
     Route: 048
     Dates: start: 20240705
  5. IBRANCE [Suspect]
     Active Substance: PALBOCICLIB
     Dosage: 100 MG, QD (WITH FOOD ON DAYS 1-21 FOLLOWED BY 14 DAYS OFF)
     Route: 065
     Dates: start: 20240816
  6. FULVESTRANT [Suspect]
     Active Substance: FULVESTRANT
     Indication: Product used for unknown indication
     Dosage: UNK
     Route: 065

REACTIONS (9)
  - Invasive ductal breast carcinoma [Unknown]
  - Malignant neoplasm progression [Unknown]
  - Metastases to bone [Unknown]
  - Lung carcinoma cell type unspecified stage 0 [Unknown]
  - Neutropenia [Unknown]
  - Ligament pain [Unknown]
  - Musculoskeletal pain [Unknown]
  - Spinal pain [Unknown]
  - Pain [Unknown]
